FAERS Safety Report 4538509-2 (Version None)
Quarter: 2004Q4

REPORT INFORMATION
  Report Type: 
  Country: None (occurrence: None)
  Receive Date: 20041227
  Receipt Date: 20041214
  Transmission Date: 20050328
  Serious: Yes (Death, Congenital Anomaly)
  Sender: FDA-Public Use
  Company Number: FR-JNJFOC-20041104292

PATIENT
  Age: 1 Day
  Sex: Female

DRUGS (4)
  1. EPITOMAX [Suspect]
     Route: 015
     Dates: start: 20031203, end: 20040723
  2. EPITOMAX [Suspect]
     Indication: DRUG USE FOR UNKNOWN INDICATION
     Dosage: 15MG IN THE MORNING AND 25MG AT NIGHT.
     Route: 015
     Dates: start: 20031203, end: 20040723
  3. KEPPRA [Suspect]
     Route: 015
  4. KEPPRA [Suspect]
     Indication: DRUG USE FOR UNKNOWN INDICATION
     Route: 015

REACTIONS (5)
  - CONGENITAL DIAPHRAGMATIC ANOMALY [None]
  - CONGENITAL DIAPHRAGMATIC HERNIA [None]
  - DRUG EXPOSURE DURING PREGNANCY [None]
  - PREMATURE LABOUR [None]
  - PULMONARY HYPOPLASIA [None]
